FAERS Safety Report 23865864 (Version 1)
Quarter: 2024Q2

REPORT INFORMATION
  Report Type: Spontaneous
  Country: US (occurrence: US)
  Receive Date: 20240517
  Receipt Date: 20240517
  Transmission Date: 20240716
  Serious: No
  Sender: FDA-Public Use
  Company Number: HIKM2401302

PATIENT
  Sex: Female

DRUGS (1)
  1. PREDNISONE [Suspect]
     Active Substance: PREDNISONE
     Indication: Blister
     Dosage: 150 MILLIGRAM
     Route: 065

REACTIONS (4)
  - Blister [Unknown]
  - Condition aggravated [Unknown]
  - Eczema [Unknown]
  - Rash [Unknown]
